FAERS Safety Report 6741126-7 (Version None)
Quarter: 2010Q2

REPORT INFORMATION
  Report Type: 
  Country: None (occurrence: None)
  Receive Date: 20100526
  Receipt Date: 20100517
  Transmission Date: 20101027
  Serious: Yes (Other)
  Sender: FDA-Public Use
  Company Number: FR-ASTRAZENECA-2010SE23028

PATIENT
  Age: 60 Year
  Sex: Female

DRUGS (4)
  1. DIPRIVAN [Suspect]
     Indication: ANAESTHESIA
     Route: 042
     Dates: start: 20100201, end: 20100201
  2. SUFENTANIL [Suspect]
     Indication: ANAESTHESIA
     Route: 042
     Dates: start: 20100201, end: 20100201
  3. TRACRIUM [Suspect]
     Indication: ANAESTHESIA
     Route: 042
     Dates: start: 20100201, end: 20100201
  4. NAROPIN [Concomitant]
     Indication: ANAESTHESIA
     Route: 065
     Dates: start: 20100201, end: 20100201

REACTIONS (1)
  - EXCESSIVE SEXUAL FANTASIES [None]
